FAERS Safety Report 20669210 (Version 1)
Quarter: 2022Q2

REPORT INFORMATION
  Report Type: Report from Study
  Country: FR (occurrence: FR)
  Receive Date: 20220404
  Receipt Date: 20220404
  Transmission Date: 20220721
  Serious: Yes (Hospitalization, Other)
  Sender: FDA-Public Use
  Company Number: FR-NOVARTISPH-NVSC2022FR072845

PATIENT
  Age: 74 Year
  Sex: Female
  Weight: 75.8 kg

DRUGS (15)
  1. ANASTROZOLE [Suspect]
     Active Substance: ANASTROZOLE
     Indication: Product used for unknown indication
     Dosage: 1 MG
     Route: 048
     Dates: start: 20170802
  2. ANASTROZOLE [Suspect]
     Active Substance: ANASTROZOLE
     Dosage: UNK
     Route: 065
     Dates: start: 20180517
  3. PALBOCICLIB [Suspect]
     Active Substance: PALBOCICLIB
     Indication: Product used for unknown indication
     Dosage: 100 MG, CYCLIC
     Route: 048
     Dates: start: 20170802, end: 20180508
  4. ESOMEPRAZOLE [Concomitant]
     Active Substance: ESOMEPRAZOLE
     Indication: Product used for unknown indication
     Dosage: 1 DOSAGE FORM, QD, (1 TABLET IN THE EVENING)
     Route: 048
  5. URAPIDIL [Concomitant]
     Active Substance: URAPIDIL
     Indication: Product used for unknown indication
     Dosage: 1.5 DOSAGE FORM, BID, (1.5 CAPSULE IN THE MORNING, 1.5 CAPSULE IN THE EVENING
     Route: 048
  6. BISOPROLOL [Concomitant]
     Active Substance: BISOPROLOL
     Indication: Product used for unknown indication
     Dosage: UNK
     Route: 065
  7. NICARDIPINE HYDROCHLORIDE [Concomitant]
     Active Substance: NICARDIPINE HYDROCHLORIDE
     Indication: Product used for unknown indication
     Dosage: UNK, (SUSTAINED RELEASE CAPSULE), (1 CAPSULE IN THE MORNING, 1 CAPSULE IN THE EVENING)
     Route: 048
  8. INNOHEP [Concomitant]
     Active Substance: TINZAPARIN SODIUM
     Indication: Product used for unknown indication
     Dosage: UNK
     Route: 065
  9. NICARDIPINE [Concomitant]
     Active Substance: NICARDIPINE
     Indication: Product used for unknown indication
     Dosage: UNK
     Route: 065
  10. PREVISCAN [Concomitant]
     Indication: Product used for unknown indication
     Dosage: UNK
     Route: 065
  11. VITAMIN B12 [Concomitant]
     Active Substance: CYANOCOBALAMIN
     Indication: Product used for unknown indication
     Dosage: 1 DOSAGE FORM, (1 AMPOULE IN THE MORNING, DELIVER QUANTITY FOR 2 DAYS)
     Route: 048
  12. ELIQUIS [Concomitant]
     Active Substance: APIXABAN
     Indication: Product used for unknown indication
     Dosage: 1 DOSAGE FORM, BID,  (1 TABLET IN THE MORNING, 1 TABLET IN THE EVENING)
     Route: 048
  13. KARDEGIC [Concomitant]
     Active Substance: ASPIRIN DL-LYSINE
     Indication: Product used for unknown indication
     Dosage: 1 DOSAGE FORM, QD,  (1 SACHET IN THE MORNING)
     Route: 048
  14. BISOPROLOL [Concomitant]
     Active Substance: BISOPROLOL
     Indication: Product used for unknown indication
     Dosage: 1 DOSAGE FORM, BID, (1 TABLET IN THE MORNING, 1 TABLET IN THE EVENING)
     Route: 048
  15. DAFALGAN [Concomitant]
     Active Substance: ACETAMINOPHEN
     Indication: Product used for unknown indication
     Dosage: 1 DOSAGE FORM, BREAKABLE EFFERVESCENT TABLET, (IF NECESSARY) NOT MORE THAN 2 TABLETS PER DOSE WITH A
     Route: 048

REACTIONS (8)
  - Cardiac failure [Recovered/Resolved]
  - Dyspnoea [Unknown]
  - Oedema peripheral [Unknown]
  - Pancytopenia [Unknown]
  - Mitral valve incompetence [Unknown]
  - Left ventricular end-diastolic pressure increased [Unknown]
  - Dilatation atrial [Unknown]
  - Inferior vena cava dilatation [Unknown]

NARRATIVE: CASE EVENT DATE: 20180517
